FAERS Safety Report 5067718-1 (Version None)
Quarter: 2006Q3

REPORT INFORMATION
  Report Type: 
  Country: None (occurrence: None)
  Receive Date: 20060728
  Receipt Date: 20060712
  Transmission Date: 20061208
  Serious: Yes (Death)
  Sender: FDA-Public Use
  Company Number: US200606004306

PATIENT
  Sex: Female

DRUGS (7)
  1. FORTEO [Suspect]
     Indication: OSTEOPOROSIS
     Dates: start: 20050501
  2. EVISTA [Suspect]
  3. FORTEO [Concomitant]
  4. CARDIZEM [Concomitant]
  5. ASPIRIN [Concomitant]
  6. CELEBREX [Concomitant]
  7. TOPROL-XL [Concomitant]

REACTIONS (2)
  - CEREBROVASCULAR ACCIDENT [None]
  - PARALYSIS [None]
